FAERS Safety Report 7482529-5 (Version None)
Quarter: 2011Q2

REPORT INFORMATION
  Report Type: 
  Country: None (occurrence: None)
  Receive Date: 20110516
  Receipt Date: 20110425
  Transmission Date: 20111010
  Serious: Yes (Hospitalization, Other)
  Sender: FDA-Public Use
  Company Number: US-BAYER-201018967NA

PATIENT
  Age: 31 Year
  Sex: Female
  Weight: 65.76 kg

DRUGS (5)
  1. SIMVASTATIN [Concomitant]
     Dosage: UNK
     Dates: start: 20080101
  2. FISH OIL [Concomitant]
  3. YASMIN [Suspect]
     Indication: AMENORRHOEA
     Dosage: UNK
  4. MULTI-VITAMINS [Concomitant]
  5. ALLEGRA [Concomitant]
     Indication: SEASONAL ALLERGY

REACTIONS (2)
  - ACUTE MYOCARDIAL INFARCTION [None]
  - CHEST PAIN [None]
